FAERS Safety Report 4755670-5 (Version None)
Quarter: 2005Q3

REPORT INFORMATION
  Report Type: 
  Country: None (occurrence: None)
  Receive Date: 20050830
  Receipt Date: 20050622
  Transmission Date: 20060218
  Serious: No
  Sender: FDA-Public Use
  Company Number: US-BRISTOL-MYERS SQUIBB COMPANY-13012752

PATIENT
  Sex: Female
  Weight: 66 kg

DRUGS (3)
  1. ABILIFY [Suspect]
     Indication: AFFECTIVE DISORDER
     Route: 048
     Dates: start: 20040201
  2. ABILIFY [Suspect]
     Route: 048
     Dates: start: 20040201
  3. KLONOPIN [Concomitant]
     Indication: PANIC ATTACK

REACTIONS (3)
  - CONFUSIONAL STATE [None]
  - HYPERSOMNIA [None]
  - VISION BLURRED [None]
